FAERS Safety Report 24118036 (Version 1)
Quarter: 2024Q3

REPORT INFORMATION
  Report Type: Spontaneous
  Country: GB (occurrence: GB)
  Receive Date: 20240722
  Receipt Date: 20240722
  Transmission Date: 20241016
  Serious: Yes (Other)
  Sender: TEVA
  Company Number: GB-MHRA-TPP12258234C15588789YC1720713132624

PATIENT
  Age: 44 Year
  Sex: Male
  Weight: 81 kg

DRUGS (13)
  1. AMLODIPINE [Suspect]
     Active Substance: AMLODIPINE BESYLATE
     Indication: Ill-defined disorder
     Dosage: DURATION: 148 DAYS
     Route: 065
     Dates: start: 20240215, end: 20240711
  2. LANSOPRAZOLE [Concomitant]
     Active Substance: LANSOPRAZOLE
     Indication: Ill-defined disorder
     Dosage: TAKE ONE CAPSULE ONCE A DAY TO HELP PREVENT IND..., DOSE FORM REPORTED: TPP YC - PLEASE RECLASSIF...
     Dates: start: 20240520, end: 20240617
  3. FAMOTIDINE [Concomitant]
     Active Substance: FAMOTIDINE
     Indication: Ill-defined disorder
     Dosage: TAKE 20MG DAILY (AS PER ALLERGY SPECIALIST), DOSE FORM REPORTED: TPP YC - PLEASE RECLASSIFY
     Dates: start: 20240215
  4. BECLOMETHASONE DIPROPIONATE\FORMOTEROL FUMARATE\GLYCOPYRROLATE [Concomitant]
     Active Substance: BECLOMETHASONE DIPROPIONATE\FORMOTEROL FUMARATE\GLYCOPYRROLATE
     Indication: Ill-defined disorder
     Dosage: INHALE 2 PUFFS TWICE A DAY FOR BREATHLESSNESS A..., DOSE FORM REPORTED: TPP YC - PLEASE RECLASSIF...
     Route: 055
     Dates: start: 20240227, end: 20240524
  5. SOPROBEC [Concomitant]
     Indication: Ill-defined disorder
     Dosage: INHALE TWO PUFFS TWICE A DAY TO HELP PREVENT BR..., DOSE FORM REPORTED: TPP YC - PLEASE RECLASSIFY
     Route: 055
     Dates: start: 20240524
  6. AMLODIPINE [Concomitant]
     Active Substance: AMLODIPINE BESYLATE
     Indication: Ill-defined disorder
     Dosage: DOSE FORM REPORTED: TPP YC - PLEASE RECLASSIFY, DURATION: 148 DAYS
     Dates: start: 20240215, end: 20240711
  7. EPIPEN [Concomitant]
     Active Substance: EPINEPHRINE
     Indication: Ill-defined disorder
     Dosage: FOR PATIENTS WEIGHING GREATER THAN 25KG. USE AS..., DOSE FORM REPORTED: TPP YC - PLEASE RECLASSIFY
     Dates: start: 20240215
  8. BENDROFLUMETHIAZIDE [Concomitant]
     Active Substance: BENDROFLUMETHIAZIDE
     Indication: Ill-defined disorder
     Dosage: TAKE ONE TABLET EACH MORNING TO HELP LOWER BLOO..., DOSE FORM REPORTED: TPP YC - PLEASE RECLASSIFY
     Dates: start: 20240711
  9. VENTOLIN [Concomitant]
     Active Substance: ALBUTEROL SULFATE
     Indication: Ill-defined disorder
     Dosage: INHALE 2 DOSES AS NEEDED, DOSE FORM REPORTED: TPP YC - PLEASE RECLASSIFY
     Route: 055
     Dates: start: 20220712
  10. PREDNISOLONE [Concomitant]
     Active Substance: PREDNISOLONE
     Indication: Ill-defined disorder
     Dosage: TAKE 6 TABLETS ONCE A DAY FOR 3 DAYS, DOSE FORM REPORTED: TPP YC - PLEASE RECLASSIFY
     Dates: start: 20240520, end: 20240523
  11. TRANEXAMIC ACID [Concomitant]
     Active Substance: TRANEXAMIC ACID
     Indication: Ill-defined disorder
     Dosage: TAKE TWO TABLETS AND IF NECESSARY REPEAT IN 6 H..., DOSE FORM REPORTED: TPP YC - PLEASE RECLASSIFY
     Dates: start: 20240215
  12. FEXOFENADINE [Concomitant]
     Active Substance: FEXOFENADINE HYDROCHLORIDE
     Indication: Ill-defined disorder
     Dosage: TAKE ONE TWICE DAILY AS ADVISED BY SPECALIST, DOSE FORM REPORTED: TPP YC - PLEASE RECLASSIFY
     Dates: start: 20240215
  13. AZELASTINE [Concomitant]
     Active Substance: AZELASTINE\AZELASTINE HYDROCHLORIDE
     Indication: Ill-defined disorder
     Dosage: TAKE 2 PUFFS EACH NOSTRIL ONCE A DAY AS PER ALL..., DOSE FORM REPORTED: TPP YC - PLEASE RECLASSIFY
     Route: 055
     Dates: start: 20231222

REACTIONS (2)
  - Joint swelling [Unknown]
  - Oedema peripheral [Recovered/Resolved]
